FAERS Safety Report 5119327-3 (Version None)
Quarter: 2006Q4

REPORT INFORMATION
  Report Type: 
  Country: None (occurrence: None)
  Receive Date: 20061003
  Receipt Date: 20060920
  Transmission Date: 20070319
  Serious: Yes (Hospitalization)
  Sender: FDA-Public Use
  Company Number: US-AMGEN-US194190

PATIENT
  Sex: Female

DRUGS (2)
  1. ENBREL [Suspect]
     Indication: RHEUMATOID ARTHRITIS
     Route: 058
     Dates: start: 20030401
  2. METHOTREXATE [Concomitant]
     Route: 058
     Dates: start: 20060101

REACTIONS (7)
  - DRUG INEFFECTIVE [None]
  - EAR DISCOMFORT [None]
  - GINGIVITIS [None]
  - HEADACHE [None]
  - HIP ARTHROPLASTY [None]
  - POSTNASAL DRIP [None]
  - RHINORRHOEA [None]
